FAERS Safety Report 5909915-6 (Version None)
Quarter: 2008Q4

REPORT INFORMATION
  Report Type: 
  Country: None (occurrence: None)
  Receive Date: 20081006
  Receipt Date: 20081006
  Transmission Date: 20090506
  Serious: Yes (Disabling, Other)
  Sender: FDA-Public Use
  Company Number: None

PATIENT
  Age: 61 Year
  Sex: Female
  Weight: 70.3075 kg

DRUGS (1)
  1. MORPHINE SULFATE [Suspect]
     Indication: POLYNEUROPATHY
     Dosage: 30 MG. 2/TWICE DAILY PO
     Route: 048
     Dates: start: 20080919, end: 20081004

REACTIONS (14)
  - ACTIVITIES OF DAILY LIVING IMPAIRED [None]
  - BEDRIDDEN [None]
  - BONE PAIN [None]
  - CARDIAC DISORDER [None]
  - DRUG DISPENSING ERROR [None]
  - DYSPNOEA [None]
  - HEADACHE [None]
  - IMPAIRED DRIVING ABILITY [None]
  - INADEQUATE ANALGESIA [None]
  - MALAISE [None]
  - MEDICATION ERROR [None]
  - NAUSEA [None]
  - PRODUCT QUALITY ISSUE [None]
  - THINKING ABNORMAL [None]
